FAERS Safety Report 8109413-8 (Version None)
Quarter: 2012Q1

REPORT INFORMATION
  Report Type: 
  Country: None (occurrence: None)
  Receive Date: 20120202
  Receipt Date: 20120130
  Transmission Date: 20120608
  Serious: No
  Sender: FDA-Public Use
  Company Number: US-BAYER-2012-010209

PATIENT
  Age: 27 Year
  Weight: 111 kg

DRUGS (4)
  1. CYMBALTA [Concomitant]
  2. ALEVE (CAPLET) [Suspect]
     Indication: ARTHRITIS
     Dosage: 3-4 TABLETS, QD
     Route: 048
  3. TRAMADOL HCL [Concomitant]
  4. PLAQUENIL [Concomitant]

REACTIONS (1)
  - ARTHRITIS [None]
